FAERS Safety Report 22318876 (Version 1)
Quarter: 2023Q2

REPORT INFORMATION
  Report Type: Spontaneous
  Country: US (occurrence: US)
  Receive Date: 20230515
  Receipt Date: 20230515
  Transmission Date: 20230722
  Serious: Yes (Hospitalization, Other)
  Sender: FDA-Public Use
  Company Number: US-AMGEN-USASP2023080568

PATIENT
  Age: 25 Year
  Sex: Male

DRUGS (1)
  1. CINACALCET HYDROCHLORIDE [Suspect]
     Active Substance: CINACALCET HYDROCHLORIDE
     Indication: Hyperparathyroidism tertiary
     Dosage: UNK
     Route: 065

REACTIONS (5)
  - Parathyroid tumour benign [Unknown]
  - Chronic kidney disease-mineral and bone disorder [Recovered/Resolved]
  - Hypocalcaemia [Unknown]
  - Sickle cell anaemia with crisis [Recovered/Resolved]
  - Treatment noncompliance [Unknown]
